FAERS Safety Report 4610193-9 (Version None)
Quarter: 2005Q2

REPORT INFORMATION
  Report Type: 
  Country: None (occurrence: None)
  Receive Date: 20050301
  Receipt Date: 20041111
  Transmission Date: 20051028
  Serious: No
  Sender: FDA-Public Use
  Company Number: WAES 0411USA02478

PATIENT
  Sex: Female

DRUGS (4)
  1. ZETIA [Suspect]
     Indication: BLOOD CHOLESTEROL INCREASED
     Dosage: 10 MG DAILY PO
     Route: 048
  2. PAXIL [Concomitant]
  3. PRILOSEC [Concomitant]
  4. SYNTHROID [Concomitant]

REACTIONS (2)
  - ABNORMAL DREAMS [None]
  - PAIN [None]
